FAERS Safety Report 8612844-0 (Version None)
Quarter: 2012Q3

REPORT INFORMATION
  Report Type: 
  Country: None (occurrence: None)
  Receive Date: 20120822
  Receipt Date: 20111011
  Transmission Date: 20120928
  Serious: No
  Sender: FDA-Public Use
  Company Number: US-ASTRAZENECA-2011SE22385

PATIENT
  Age: 53 Year
  Sex: Female

DRUGS (2)
  1. SYMBICORT [Suspect]
     Dosage: TOTAL DAILY DOSAGE 160/4.5
     Route: 055
  2. SYMBICORT [Suspect]
     Dosage: 80/4.5 UNKNOWN
     Route: 055

REACTIONS (3)
  - MALAISE [None]
  - DRUG DOSE OMISSION [None]
  - DRUG DISPENSING ERROR [None]
